FAERS Safety Report 6072950-4 (Version None)
Quarter: 2009Q1

REPORT INFORMATION
  Report Type: 
  Country: None (occurrence: None)
  Receive Date: 20090205
  Receipt Date: 20080617
  Transmission Date: 20090719
  Serious: Yes (Other)
  Sender: FDA-Public Use
  Company Number: 2-0608-09

PATIENT
  Sex: Male

DRUGS (3)
  1. DERMA-SMOOTHE/FS [Suspect]
     Indication: PSORIASIS
     Dosage: TOPICAL
     Route: 061
  2. BLOOD PRESSURE RX [Concomitant]
  3. CHOLESTEROL RX [Concomitant]

REACTIONS (1)
  - OCULAR HYPERAEMIA [None]
